FAERS Safety Report 6082322-4 (Version None)
Quarter: 2009Q1

REPORT INFORMATION
  Report Type: 
  Country: None (occurrence: None)
  Receive Date: 20090130
  Receipt Date: 20080821
  Transmission Date: 20090719
  Serious: Yes (Other)
  Sender: FDA-Public Use
  Company Number: 582337

PATIENT
  Age: 54 Year
  Sex: Female
  Weight: 54 kg

DRUGS (7)
  1. RIBAVIRIN [Suspect]
     Indication: HEPATITIS C
     Dates: start: 20070228, end: 20071119
  2. PEG-INTRON [Suspect]
     Indication: HEPATITIS C
     Dates: start: 20070228, end: 20071204
  3. PROCRIT [Suspect]
     Indication: ANAEMIA
     Dosage: 40000 IU 1 PER WEEK SUBCUTANEOUS
     Route: 058
     Dates: start: 20070314, end: 20080114
  4. METFORMIN HCL [Concomitant]
  5. LOTREL (AMLODIPINE BESYLATE /BENAZEPRIL HYDROCHLORIDE) [Concomitant]
  6. BISELECT (BISOPROLOL/HYDROCHLOROTHIAZIDE) [Concomitant]
  7. ADVICOR [Concomitant]

REACTIONS (1)
  - NEUTRALISING ANTIBODIES POSITIVE [None]
